FAERS Safety Report 23065891 (Version 1)
Quarter: 2023Q4

REPORT INFORMATION
  Report Type: Spontaneous
  Country: US (occurrence: US)
  Receive Date: 20231014
  Receipt Date: 20231014
  Transmission Date: 20240109
  Serious: Yes (Hospitalization, Other)
  Sender: FDA-Public Use
  Company Number: US-TORRENT-00012892

PATIENT
  Age: 60 Year
  Sex: Male

DRUGS (1)
  1. ITRACONAZOLE [Suspect]
     Active Substance: ITRACONAZOLE
     Indication: Blastomycosis
     Dosage: UNKNOWN
     Route: 048

REACTIONS (3)
  - Treatment noncompliance [Unknown]
  - Haemoptysis [Recovered/Resolved]
  - Anaemia [Unknown]
